FAERS Safety Report 5699131-8 (Version None)
Quarter: 2008Q2

REPORT INFORMATION
  Report Type: 
  Country: None (occurrence: None)
  Receive Date: 20080407
  Receipt Date: 20080407
  Transmission Date: 20081010
  Serious: Yes (Other)
  Sender: FDA-Public Use
  Company Number: None

PATIENT
  Age: 32 Year
  Sex: Female
  Weight: 54.4316 kg

DRUGS (1)
  1. CYMBALTA [Suspect]
     Indication: DEPRESSION
     Dosage: 60MG  DAILY  PO
     Route: 048
     Dates: start: 20070103, end: 20071019

REACTIONS (5)
  - ABASIA [None]
  - APHASIA [None]
  - DYSKINESIA [None]
  - DYSTONIA [None]
  - TORTICOLLIS [None]
